FAERS Safety Report 24922589 (Version 1)
Quarter: 2025Q1

REPORT INFORMATION
  Report Type: Spontaneous
  Country: US (occurrence: None)
  Receive Date: 20250204
  Receipt Date: 20250204
  Transmission Date: 20250408
  Serious: Yes (Hospitalization)
  Sender: FDA-CTU
  Company Number: None

PATIENT
  Sex: Female

DRUGS (1)
  1. HUMIRA [Suspect]
     Active Substance: ADALIMUMAB
     Indication: Crohn^s disease
     Dosage: FREQUENCY : DAILY;?
     Route: 058
     Dates: start: 201910

REACTIONS (4)
  - Crohn^s disease [None]
  - Product distribution issue [None]
  - Therapy interrupted [None]
  - Haemorrhage [None]
